FAERS Safety Report 10541240 (Version 1)
Quarter: 2014Q4

REPORT INFORMATION
  Report Type: Spontaneous
  Country: US (occurrence: None)
  Receive Date: 20141010
  Receipt Date: 20141010
  Transmission Date: 20150529
  Serious: No
  Sender: FDA-Public Use
  Company Number: 163-POMAL-14053406

PATIENT
  Age: 74 Year
  Sex: Female

DRUGS (8)
  1. ZOLPIDEM (ZOLPIDEM) (TABLETS) [Concomitant]
  2. POMALYST [Suspect]
     Active Substance: POMALIDOMIDE
     Indication: PLASMA CELL MYELOMA
     Dosage: 4 MG, 21 IN 28 D, PO
     Route: 048
     Dates: start: 20140416, end: 2014
  3. DEXAMETHASONE (DEXAMETHASONE) (POWDER) [Concomitant]
  4. COUMADIN (WARFARIN SODIUM) (TABLETS) [Concomitant]
  5. DEXAMETHASONE PHOSPHATE (DEXAXAMETHASONE PHOSPHATE) (INJECTION) [Concomitant]
  6. XARELTO (RIVAROXABAN) (TABLETS) [Concomitant]
  7. ACYCLOVIR (ACICLOVIR) (TABLETS) [Concomitant]
  8. HYDROCODONE (HYDROCODONE) (POWDER) [Concomitant]

REACTIONS (1)
  - Toxicity to various agents [None]

NARRATIVE: CASE EVENT DATE: 20140514
